FAERS Safety Report 11830609 (Version 10)
Quarter: 2017Q2

REPORT INFORMATION
  Report Type: Report from Study
  Country: GB (occurrence: GB)
  Receive Date: 20151214
  Receipt Date: 20170515
  Transmission Date: 20170829
  Serious: Yes (Death, Life-Threatening)
  Sender: FDA-Public Use
  Company Number: GB-ROCHE-1676346

PATIENT
  Age: 72 Year
  Sex: Female

DRUGS (20)
  1. GAVISCON (ALGINIC ACID) [Concomitant]
     Route: 065
     Dates: start: 2014, end: 2014
  2. LOPERAMIDE [Concomitant]
     Active Substance: LOPERAMIDE
  3. CYCLIZINE [Concomitant]
     Active Substance: CYCLIZINE
     Route: 065
     Dates: start: 20141114, end: 20141116
  4. LEVOMEPROMAZINE [Concomitant]
     Active Substance: LEVOMEPROMAZINE
     Route: 065
     Dates: start: 20141113, end: 20141121
  5. LEVOMEPROMAZINE [Concomitant]
     Active Substance: LEVOMEPROMAZINE
     Route: 065
     Dates: start: 20141124, end: 20141125
  6. OMEPRAZOLE. [Concomitant]
     Active Substance: OMEPRAZOLE
     Route: 065
     Dates: start: 20141117
  7. ALFENTANIL. [Concomitant]
     Active Substance: ALFENTANIL
     Route: 065
     Dates: start: 20141124, end: 20141125
  8. BUSCOPAN [Concomitant]
     Active Substance: BUTYLSCOPOLAMINE BROMIDE
     Route: 065
     Dates: start: 20141124, end: 20141125
  9. LAXIDO [Concomitant]
     Active Substance: POLYETHYLENE GLYCOL 3350\POTASSIUM CHLORIDE\SODIUM BICARBONATE\SODIUM CHLORIDE
     Route: 065
     Dates: start: 201411, end: 201411
  10. CLEXANE [Suspect]
     Active Substance: ENOXAPARIN SODIUM
     Route: 065
     Dates: start: 20141119, end: 20141119
  11. RANITIDINE. [Concomitant]
     Active Substance: RANITIDINE
     Route: 065
     Dates: start: 201411, end: 20141125
  12. DOMPERIDONE [Concomitant]
     Active Substance: DOMPERIDONE
     Route: 065
     Dates: start: 201410, end: 201411
  13. METOCLOPRAMIDE. [Concomitant]
     Active Substance: METOCLOPRAMIDE
     Route: 065
     Dates: start: 20141120, end: 20141124
  14. BEVACIZUMAB [Suspect]
     Active Substance: BEVACIZUMAB
     Indication: OVARIAN CANCER
     Dosage: DATE OF LAST DOSE PRIOR TO SAE: 06/JUN/2014
     Route: 042
     Dates: start: 20131108
  15. CLEXANE [Suspect]
     Active Substance: ENOXAPARIN SODIUM
     Indication: DEEP VEIN THROMBOSIS
     Route: 065
     Dates: start: 201410, end: 20141113
  16. ONDANSETRON [Concomitant]
     Active Substance: ONDANSETRON
     Route: 065
     Dates: start: 20141116, end: 201411
  17. PARACETAMOL [Concomitant]
     Active Substance: ACETAMINOPHEN
     Route: 065
     Dates: start: 2014, end: 201411
  18. OMEPRAZOLE. [Concomitant]
     Active Substance: OMEPRAZOLE
     Route: 065
     Dates: start: 20141114, end: 20141117
  19. MORPHINE SULPHATE [Concomitant]
     Active Substance: MORPHINE SULFATE
     Route: 065
     Dates: start: 20141123
  20. FUROSEMIDE. [Concomitant]
     Active Substance: FUROSEMIDE
     Route: 065
     Dates: start: 20141118, end: 20141118

REACTIONS (3)
  - Oesophagitis [Not Recovered/Not Resolved]
  - Gastrointestinal haemorrhage [Not Recovered/Not Resolved]
  - Deep vein thrombosis [Not Recovered/Not Resolved]

NARRATIVE: CASE EVENT DATE: 20140922
